FAERS Safety Report 13077935 (Version 15)
Quarter: 2019Q4

REPORT INFORMATION
  Report Type: Report from Study
  Country: JP (occurrence: JP)
  Receive Date: 20170102
  Receipt Date: 20191010
  Transmission Date: 20200122
  Serious: Yes (Hospitalization, Other)
  Sender: FDA-Public Use
  Company Number: JP-ROCHE-1872772

PATIENT
  Age: 46 Year
  Sex: Male
  Weight: 74 kg

DRUGS (66)
  1. RHYTHMY [Concomitant]
     Active Substance: RILMAZAFONE HYDROCHLORIDE
     Indication: INSOMNIA
     Route: 065
     Dates: start: 20161227, end: 20170115
  2. ALLYLISOPROPYLACETYLUREA [Concomitant]
     Active Substance: APRONALIDE
     Route: 065
     Dates: start: 20170319, end: 20170319
  3. ANHYDROUS CAFFEINE [Concomitant]
     Active Substance: CAFFEINE
     Route: 065
     Dates: start: 20170329, end: 20170330
  4. AMOXICILLIN. [Concomitant]
     Active Substance: AMOXICILLIN
     Indication: RHINITIS
     Route: 065
     Dates: start: 20170329, end: 20170405
  5. GLYCERIN [GLYCEROL] [Concomitant]
     Indication: STOMATITIS
     Route: 065
     Dates: start: 20181114, end: 20181127
  6. VILANTEROL TRIFENATATE [Concomitant]
     Active Substance: VILANTEROL TRIFENATATE
     Indication: ASTHMA
     Route: 065
     Dates: start: 20190222
  7. TAZOPIPE [Concomitant]
     Active Substance: PIPERACILLIN SODIUM\TAZOBACTAM SODIUM
     Indication: BRONCHITIS BACTERIAL
     Route: 065
     Dates: start: 20190222, end: 20190225
  8. CEFAZOLIN SODIUM. [Concomitant]
     Active Substance: CEFAZOLIN SODIUM
     Indication: BRONCHITIS BACTERIAL
     Route: 065
     Dates: start: 20190225, end: 20190226
  9. MIYA-BM [Concomitant]
     Active Substance: CLOSTRIDIUM BUTYRICUM SPORES STRAIN M-55
     Indication: DIARRHOEA
     Route: 065
     Dates: start: 20190226, end: 20190227
  10. BESOFTEN [Concomitant]
     Active Substance: PENTOSAN POLYSULFATE SODIUM
     Indication: PRURITUS
     Route: 065
     Dates: start: 20190306, end: 20190307
  11. LEVOFLOXACIN. [Concomitant]
     Active Substance: LEVOFLOXACIN
     Indication: GASTROENTERITIS
     Route: 065
     Dates: start: 20190321, end: 20190325
  12. ARGAMATE [Concomitant]
     Active Substance: CALCIUM POLYSTYRENE SULFONATE
     Route: 065
     Dates: start: 20170329, end: 20170405
  13. IBUPROFEN. [Concomitant]
     Active Substance: IBUPROFEN
     Route: 065
     Dates: start: 20170615, end: 20170615
  14. ALLYLISOPROPYLACETYLUREA [Concomitant]
     Active Substance: APRONALIDE
     Route: 065
     Dates: start: 20170329, end: 20170330
  15. ANHYDROUS CAFFEINE [Concomitant]
     Active Substance: CAFFEINE
     Route: 065
     Dates: start: 20170331, end: 20170401
  16. LOXOPROFEN [Concomitant]
     Active Substance: LOXOPROFEN
     Indication: BRONCHITIS BACTERIAL
     Route: 065
     Dates: start: 20190221, end: 20190221
  17. VENETLIN [Concomitant]
     Active Substance: ALBUTEROL SULFATE
     Route: 065
     Dates: start: 20190223, end: 20190307
  18. CEFMETAZOLE SODIUM [Concomitant]
     Active Substance: CEFMETAZOLE SODIUM
     Indication: GASTROENTERITIS
     Route: 042
     Dates: start: 20190318, end: 20190320
  19. SULTANOL [Concomitant]
     Active Substance: ALBUTEROL SULFATE
     Indication: ASTHMA
     Dosage: INHALER
     Route: 065
     Dates: start: 20190416
  20. LANSOPRAZOLE. [Concomitant]
     Active Substance: LANSOPRAZOLE
     Route: 065
     Dates: start: 20181017, end: 20190910
  21. LACTEC [Concomitant]
     Active Substance: CALCIUM CHLORIDE ANHYDROUS\POTASSIUM CHLORIDE\SODIUM CHLORIDE\SODIUM LACTATE
     Indication: RENAL IMPAIRMENT
     Route: 065
     Dates: start: 20161229, end: 20161229
  22. PROMETHAZINE METHYLENE DISALICYLATE [Concomitant]
     Active Substance: PROMETHAZINE METHYLENEDISALICYLATE
     Indication: RHINITIS
     Route: 065
     Dates: start: 20170331, end: 20170401
  23. SODIUM CHLORIDE. [Concomitant]
     Active Substance: SODIUM CHLORIDE
     Indication: GASTROENTERITIS
     Route: 065
     Dates: start: 20190318, end: 20190319
  24. AZ COMBINATION [Concomitant]
     Indication: STOMATITIS
     Route: 065
     Dates: start: 20181114, end: 20181127
  25. UNASYN S [Concomitant]
     Active Substance: AMPICILLIN SODIUM\SULBACTAM SODIUM
     Indication: BRONCHITIS BACTERIAL
     Route: 042
     Dates: start: 20190227, end: 20190228
  26. MIYA-BM [Concomitant]
     Active Substance: CLOSTRIDIUM BUTYRICUM SPORES STRAIN M-55
     Indication: ENTEROCOLITIS
     Route: 065
     Dates: start: 20190327, end: 20190910
  27. CEFZON [CEFDINIR] [Concomitant]
     Route: 065
     Dates: start: 20190717, end: 20190724
  28. ARGAMATE [Concomitant]
     Active Substance: CALCIUM POLYSTYRENE SULFONATE
     Indication: HYPERKALAEMIA
     Route: 065
     Dates: start: 20170125, end: 20170201
  29. ARGAMATE [Concomitant]
     Active Substance: CALCIUM POLYSTYRENE SULFONATE
     Route: 065
     Dates: start: 20170306, end: 20170308
  30. ARGAMATE [Concomitant]
     Active Substance: CALCIUM POLYSTYRENE SULFONATE
     Route: 065
     Dates: start: 20170428
  31. IBUPROFEN. [Concomitant]
     Active Substance: IBUPROFEN
     Route: 065
     Dates: start: 20170319, end: 20170319
  32. ANHYDROUS CAFFEINE [Concomitant]
     Active Substance: CAFFEINE
     Indication: HEADACHE
     Route: 065
     Dates: start: 20170224, end: 20170226
  33. SALICYLAMIDE [Concomitant]
     Active Substance: SALICYLAMIDE
     Indication: RHINITIS
     Route: 065
     Dates: start: 20170331, end: 20170401
  34. SENNOSIDE [SENNOSIDE A+B] [Concomitant]
     Active Substance: SENNOSIDES A AND B
     Indication: CONSTIPATION
     Route: 065
     Dates: start: 20190310, end: 20190311
  35. METOCLOPRAMIDE HYDROCHLORIDE. [Concomitant]
     Active Substance: METOCLOPRAMIDE HYDROCHLORIDE
     Indication: GASTROENTERITIS
     Route: 065
     Dates: start: 20190318, end: 20190318
  36. NADIFLOXACIN [Concomitant]
     Active Substance: NADIFLOXACIN
     Route: 065
     Dates: start: 20190717, end: 20190718
  37. ALENDRONATE [Concomitant]
     Active Substance: ALENDRONATE SODIUM
     Indication: OSTEOPOROSIS
     Route: 065
     Dates: start: 20190324, end: 20190908
  38. IBUPROFEN. [Concomitant]
     Active Substance: IBUPROFEN
     Route: 065
     Dates: start: 20170329, end: 20170330
  39. ALLYLISOPROPYLACETYLUREA [Concomitant]
     Active Substance: APRONALIDE
     Indication: HEADACHE
     Route: 065
     Dates: start: 20170224, end: 20170226
  40. FORMOTEROL FUMARATE DIHYDRATE [Concomitant]
     Active Substance: FORMOTEROL FUMARATE DIHYDRATE
     Indication: ASTHMA
     Route: 065
     Dates: start: 20181030
  41. SODIUM CHLORIDE. [Concomitant]
     Active Substance: SODIUM CHLORIDE
     Indication: RENAL IMPAIRMENT
     Route: 065
     Dates: start: 20181030, end: 20181031
  42. ROPION [Concomitant]
     Active Substance: FLURBIPROFEN AXETIL
     Indication: BRONCHITIS BACTERIAL
     Route: 065
     Dates: start: 20190222, end: 20190222
  43. MIYA-BM [Concomitant]
     Active Substance: CLOSTRIDIUM BUTYRICUM SPORES STRAIN M-55
     Indication: GASTROENTERITIS
     Route: 065
     Dates: start: 20190318
  44. ALENDRONATE [Concomitant]
     Active Substance: ALENDRONATE SODIUM
     Indication: OSTEOPOROSIS
     Route: 065
     Dates: start: 20190324
  45. RILMAZAFONE HYDROCHLORIDE [Concomitant]
     Active Substance: RILMAZAFONE HYDROCHLORIDE
     Indication: INSOMNIA
     Route: 065
     Dates: start: 20190919
  46. BESOFTEN [Concomitant]
     Active Substance: PENTOSAN POLYSULFATE SODIUM
     Indication: PRURITUS
     Route: 065
     Dates: start: 20170104, end: 20170117
  47. BAKTAR [Concomitant]
     Active Substance: SULFAMETHOXAZOLE\TRIMETHOPRIM
     Indication: INFECTION
     Route: 065
     Dates: start: 20170105, end: 20170303
  48. ALLYLISOPROPYLACETYLUREA [Concomitant]
     Active Substance: APRONALIDE
     Route: 065
     Dates: start: 20170615, end: 20170615
  49. XYZAL [Concomitant]
     Active Substance: LEVOCETIRIZINE DIHYDROCHLORIDE
     Indication: RASH
     Route: 065
     Dates: start: 20170303, end: 20170317
  50. DL-METHYLEPHEDRINE HYDROCHLORIDE [Concomitant]
     Active Substance: METHYLEPHEDRINE HYDROCHLORIDE, (+/-)-
     Indication: RHINITIS
     Route: 065
     Dates: start: 20170331, end: 20170401
  51. DIHYDROCODEINE PHOSPHATE [Concomitant]
     Active Substance: DIHYDROCODEINE PHOSPHATE
     Indication: RHINITIS
     Route: 065
     Dates: start: 20170331, end: 20170401
  52. TAMIFLU [Concomitant]
     Active Substance: OSELTAMIVIR PHOSPHATE
     Indication: INFLUENZA
     Route: 065
     Dates: start: 20190115, end: 20190119
  53. CALONAL [Concomitant]
     Active Substance: ACETAMINOPHEN
     Indication: GASTROENTERITIS
     Route: 065
     Dates: start: 20190318, end: 20190318
  54. ATEZOLIZUMAB. [Suspect]
     Active Substance: ATEZOLIZUMAB
     Indication: NON-SMALL CELL LUNG CANCER STAGE IV
     Dosage: MOST RECENT DOSE OF ATEZOLIZUMAB WAS ADMINISTERED ON 12/DEC/2016 AT 10:58 (CYCLE 1 DAY 1).?ON 10/APR
     Route: 042
     Dates: start: 20161212
  55. LANSOPRAZOLE. [Concomitant]
     Active Substance: LANSOPRAZOLE
     Indication: GASTRITIS
     Route: 065
     Dates: start: 20161230, end: 20170710
  56. IBUPROFEN. [Concomitant]
     Active Substance: IBUPROFEN
     Indication: HEADACHE
     Route: 065
     Dates: start: 20170224, end: 20170226
  57. ANHYDROUS CAFFEINE [Concomitant]
     Active Substance: CAFFEINE
     Indication: RHINITIS
     Route: 065
     Dates: start: 20170319, end: 20170319
  58. ANHYDROUS CAFFEINE [Concomitant]
     Active Substance: CAFFEINE
     Route: 065
     Dates: start: 20170615, end: 20170615
  59. HIRUDOID [Concomitant]
     Active Substance: GLYCOSAMINOGLYCANS
     Indication: DRY SKIN
     Route: 065
     Dates: start: 20170405
  60. POLARAMINE [Concomitant]
     Active Substance: DEXCHLORPHENIRAMINE MALEATE
     Indication: PRURITUS
     Route: 065
     Dates: start: 20190226, end: 20190301
  61. TOWATHIEM [Concomitant]
     Active Substance: ACETAMINOPHEN\CAFFEINE\PROMETHAZINE\SALICYLAMIDE
     Indication: NASOPHARYNGITIS
     Route: 065
     Dates: start: 20161208, end: 20161223
  62. BESOFTEN [Concomitant]
     Active Substance: PENTOSAN POLYSULFATE SODIUM
     Indication: DRY SKIN
     Route: 065
     Dates: start: 20170405
  63. BELLADONNA [Concomitant]
     Active Substance: ATROPA BELLADONNA\HOMEOPATHICS
     Indication: RHINITIS
     Route: 065
     Dates: start: 20170331, end: 20170401
  64. GUAIFENESIN. [Concomitant]
     Active Substance: GUAIFENESIN
     Indication: RHINITIS
     Route: 065
     Dates: start: 20170331, end: 20170401
  65. ENCRUSE [Concomitant]
     Active Substance: UMECLIDINIUM BROMIDE
     Indication: CHRONIC OBSTRUCTIVE PULMONARY DISEASE
     Route: 065
     Dates: start: 20190222
  66. BOSMIN [EPINEPHRINE] [Concomitant]
     Indication: ASTHMA
     Route: 065
     Dates: start: 20190222, end: 20190222

REACTIONS (2)
  - Immune system disorder [Recovered/Resolved]
  - Immune system disorder [Recovered/Resolved]

NARRATIVE: CASE EVENT DATE: 20161222
